FAERS Safety Report 9711350 (Version 3)
Quarter: 2014Q1

REPORT INFORMATION
  Report Type: Spontaneous
  Country: FR (occurrence: FR)
  Receive Date: 20131126
  Receipt Date: 20140131
  Transmission Date: 20141002
  Serious: Yes (Hospitalization, Other)
  Sender: FDA-Public Use
  Company Number: FR-NOVOPROD-393213

PATIENT
  Age: 15 Year
  Sex: Male
  Weight: 33 kg

DRUGS (1)
  1. NOVOMIX 30 FLEXPEN [Suspect]
     Indication: TYPE 1 DIABETES MELLITUS
     Dosage: 30 IU, QD
     Route: 058

REACTIONS (2)
  - Tachycardia [Recovered/Resolved]
  - Diabetic ketoacidosis [Recovered/Resolved]
